FAERS Safety Report 4553866-9 (Version None)
Quarter: 2005Q1

REPORT INFORMATION
  Report Type: 
  Country: None (occurrence: None)
  Receive Date: 20050113
  Receipt Date: 20050113
  Transmission Date: 20050727
  Serious: No
  Sender: FDA-Public Use
  Company Number: None

PATIENT
  Age: 58 Year
  Sex: Female

DRUGS (1)
  1. VALPROIC ACID [Suspect]

REACTIONS (3)
  - AMMONIA INCREASED [None]
  - ENCEPHALOPATHY [None]
  - NERVOUS SYSTEM DISORDER [None]
